FAERS Safety Report 9710384 (Version 3)
Quarter: 2013Q4

REPORT INFORMATION
  Report Type: Spontaneous
  Country: GR (occurrence: GR)
  Receive Date: 20131126
  Receipt Date: 20131223
  Transmission Date: 20140711
  Serious: Yes (Other)
  Sender: FDA-Public Use
  Company Number: GR-ELI_LILLY_AND_COMPANY-GR201311005482

PATIENT
  Age: 72 Year
  Sex: Female

DRUGS (4)
  1. FORSTEO [Suspect]
     Indication: OSTEOPOROSIS
     Dosage: 20 UG, QD
     Route: 058
  2. FORSTEO [Suspect]
     Dosage: 20 UG, QOD
     Route: 058
  3. CALCIUM [Concomitant]
     Dosage: UNK, UNKNOWN
     Route: 065
  4. VITAMIN D [Concomitant]
     Dosage: UNK, UNKNOWN
     Route: 065

REACTIONS (4)
  - Blood alkaline phosphatase increased [Recovered/Resolved]
  - Blood calcium increased [Unknown]
  - Blood parathyroid hormone increased [Unknown]
  - Inappropriate schedule of drug administration [Unknown]
